FAERS Safety Report 5600869-9 (Version None)
Quarter: 2008Q1

REPORT INFORMATION
  Report Type: 
  Country: None (occurrence: None)
  Receive Date: 20080122
  Receipt Date: 20080122
  Transmission Date: 20080703
  Serious: Yes (Other)
  Sender: FDA-Public Use
  Company Number: None

PATIENT
  Sex: Male

DRUGS (1)
  1. ISOSORBIDE DINITRATE [Suspect]
     Indication: ANGINA PECTORIS
     Dosage: 60 2X/DAY PO
     Route: 048
     Dates: start: 20020828, end: 20020920

REACTIONS (3)
  - ANGINA PECTORIS [None]
  - FEELING ABNORMAL [None]
  - THERAPEUTIC RESPONSE UNEXPECTED WITH DRUG SUBSTITUTION [None]
